FAERS Safety Report 18003016 (Version 1)
Quarter: 2020Q3

REPORT INFORMATION
  Report Type: Spontaneous
  Country: US (occurrence: US)
  Receive Date: 20200709
  Receipt Date: 20200709
  Transmission Date: 20201103
  Serious: No
  Sender: FDA-Public Use
  Company Number: US-ASTELLAS-2019US034000

PATIENT
  Age: 82 Year
  Sex: Male

DRUGS (1)
  1. MYRBETRIQ [Suspect]
     Active Substance: MIRABEGRON
     Indication: PROSTATIC DISORDER
     Route: 065
     Dates: start: 20190815

REACTIONS (3)
  - Product use in unapproved indication [Unknown]
  - Urinary incontinence [Unknown]
  - Pollakiuria [Unknown]
